FAERS Safety Report 5445276-7 (Version None)
Quarter: 2007Q3

REPORT INFORMATION
  Report Type: 
  Country: None (occurrence: None)
  Receive Date: 20070906
  Receipt Date: 20070828
  Transmission Date: 20080115
  Serious: Yes (Hospitalization)
  Sender: FDA-Public Use
  Company Number: GB-PFIZER INC-2007072517

PATIENT
  Age: 42 Year
  Sex: Male

DRUGS (5)
  1. CHAMPIX [Suspect]
     Route: 048
  2. SIMVASTATIN [Concomitant]
  3. DICLOFENAC [Concomitant]
  4. TRAMADOL HCL [Concomitant]
  5. ALL OTHER THERAPEUTIC PRODUCTS [Concomitant]

REACTIONS (4)
  - BLISTER [None]
  - RASH [None]
  - SWELLING [None]
  - SWELLING FACE [None]
